FAERS Safety Report 7269883-4 (Version None)
Quarter: 2011Q1

REPORT INFORMATION
  Report Type: 
  Country: None (occurrence: None)
  Receive Date: 20110202
  Receipt Date: 20110124
  Transmission Date: 20110831
  Serious: Yes (Other)
  Sender: FDA-Public Use
  Company Number: CA-SANOFI-AVENTIS-2011SA004464

PATIENT
  Sex: Male
  Weight: 94 kg

DRUGS (8)
  1. TIAZAC [Concomitant]
  2. COZAAR [Concomitant]
  3. BLINDED THERAPY [Suspect]
     Route: 048
     Dates: start: 20101120, end: 20101125
  4. ROSUVASTATIN CALCIUM [Concomitant]
  5. ANTIHYPERTENSIVES [Concomitant]
  6. WARFARIN [Concomitant]
  7. BISOPROLOL [Concomitant]
  8. DRONEDARONE [Suspect]
     Route: 048
     Dates: start: 20101126

REACTIONS (1)
  - CARDIAC FAILURE CONGESTIVE [None]
